FAERS Safety Report 7196202-4 (Version None)
Quarter: 2010Q4

REPORT INFORMATION
  Report Type: 
  Country: None (occurrence: None)
  Receive Date: 20101223
  Receipt Date: 20101019
  Transmission Date: 20110411
  Serious: No
  Sender: FDA-Public Use
  Company Number: US-AMGEN-USASP2010001000

PATIENT

DRUGS (2)
  1. ENBREL [Suspect]
     Indication: RHEUMATOID ARTHRITIS
     Dosage: 50 MG, QWK
     Dates: start: 20100930
  2. METHOTREXATE [Concomitant]
     Dosage: 8 MG, QWK
     Dates: start: 20080101

REACTIONS (4)
  - ARTHRALGIA [None]
  - HEADACHE [None]
  - NASAL CONGESTION [None]
  - PRODUCTIVE COUGH [None]
